FAERS Safety Report 24183900 (Version 1)
Quarter: 2024Q3

REPORT INFORMATION
  Report Type: Spontaneous
  Country: GB (occurrence: None)
  Receive Date: 20240807
  Receipt Date: 20240807
  Transmission Date: 20241017
  Serious: Yes (Hospitalization, Disabling, Other)
  Sender: ASTRAZENECA
  Company Number: 2024A173267

PATIENT
  Age: 65 Year
  Sex: Male

DRUGS (15)
  1. DAPAGLIFLOZIN [Suspect]
     Active Substance: DAPAGLIFLOZIN
     Route: 048
  2. LANSOPRAZOLE [Concomitant]
     Active Substance: LANSOPRAZOLE
     Dosage: IN THE MORNING
  3. SACUBITRIL 49 MG / VALSARTAN 51 MG [Concomitant]
     Dosage: SACUBITRIL 49 MG / VALSARTAN 51 MG
  4. SPIRONOLACTONE [Concomitant]
     Active Substance: SPIRONOLACTONE
  5. EZETIMIBE [Concomitant]
     Active Substance: EZETIMIBE
  6. ATORVASTATIN [Concomitant]
     Active Substance: ATORVASTATIN
     Dosage: AT NIGHT
  7. GLICLAZIDE [Concomitant]
     Active Substance: GLICLAZIDE
  8. EDOXABAN [Concomitant]
     Active Substance: EDOXABAN
     Indication: Cardiovascular disorder
  9. NITROGLYCERIN [Concomitant]
     Active Substance: NITROGLYCERIN
     Dosage: ONE OR TWO DOSES TO BE TAKEN AS REQUIRED
  10. FUROSEMIDE [Concomitant]
     Active Substance: FUROSEMIDE
     Dosage: EACH MORNING
  11. BISOPROLOL [Concomitant]
     Active Substance: BISOPROLOL\BISOPROLOL FUMARATE
  12. CLOPIDOGREL [Concomitant]
     Active Substance: CLOPIDOGREL BISULFATE
     Dosage: FOR 12 MONTHS AS PER HOSPITAL-STOP 18.10.24
  13. HUMULIN L [Concomitant]
     Active Substance: INSULIN HUMAN
     Dosage: IN THE MORNING
  14. RANOLAZINE [Concomitant]
     Active Substance: RANOLAZINE
  15. ISOSORBIDE MONONITRATE [Concomitant]
     Active Substance: ISOSORBIDE MONONITRATE
     Dosage: EACH MORNING

REACTIONS (2)
  - Foot amputation [Not Recovered/Not Resolved]
  - Osteomyelitis [Recovered/Resolved]
